FAERS Safety Report 15476066 (Version 1)
Quarter: 2018Q4

REPORT INFORMATION
  Report Type: Spontaneous
  Country: US (occurrence: US)
  Receive Date: 20181009
  Receipt Date: 20181009
  Transmission Date: 20190205
  Serious: Yes (Death)
  Sender: FDA-Public Use
  Company Number: US-INSYS THERAPEUTICS, INC-INS201810-000360

PATIENT
  Age: 74 Year
  Sex: Male

DRUGS (3)
  1. ATIVAN [Concomitant]
     Active Substance: LORAZEPAM
     Indication: ANXIETY
  2. OXYCODONE [Concomitant]
     Active Substance: OXYCODONE
     Indication: PAIN
  3. SUBSYS [Suspect]
     Active Substance: FENTANYL
     Indication: BREAKTHROUGH PAIN
     Route: 060
     Dates: start: 20170222

REACTIONS (1)
  - Neoplasm progression [Fatal]

NARRATIVE: CASE EVENT DATE: 20180330
